FAERS Safety Report 7267496-1 (Version None)
Quarter: 2011Q1

REPORT INFORMATION
  Report Type: 
  Country: None (occurrence: None)
  Receive Date: 20110201
  Receipt Date: 20110126
  Transmission Date: 20110831
  Serious: Yes (Other)
  Sender: FDA-Public Use
  Company Number: JP-SANOFI-AVENTIS-2011SA005148

PATIENT

DRUGS (2)
  1. AMARYL [Suspect]
     Route: 048
  2. LANTUS [Suspect]
     Dosage: DOSE:100 INTERNATIONAL UNIT(S)/MILLILITRE
     Route: 058

REACTIONS (2)
  - DIABETIC KETOACIDOSIS [None]
  - HYPOGLYCAEMIA [None]
